FAERS Safety Report 12654495 (Version 7)
Quarter: 2017Q1

REPORT INFORMATION
  Report Type: Report from Study
  Country: CO (occurrence: CO)
  Receive Date: 20160816
  Receipt Date: 20170216
  Transmission Date: 20170428
  Serious: Yes (Hospitalization, Other)
  Sender: FDA-Public Use
  Company Number: PHHY2016CO111394

PATIENT
  Sex: Female
  Weight: 65 kg

DRUGS (5)
  1. REVOLADE [Suspect]
     Active Substance: ELTROMBOPAG
     Dosage: 25 MG, TID
     Route: 047
     Dates: start: 20170130
  2. PREDNISOLONE. [Concomitant]
     Active Substance: PREDNISOLONE
     Indication: PRODUCT USED FOR UNKNOWN INDICATION
     Dosage: 50 MG, UNK
     Route: 065
  3. REVOLADE [Suspect]
     Active Substance: ELTROMBOPAG
     Indication: IMMUNE THROMBOCYTOPENIC PURPURA
     Dosage: 25 MG, QD
     Route: 047
     Dates: start: 20160615
  4. REVOLADE [Suspect]
     Active Substance: ELTROMBOPAG
     Dosage: 25 MG, TID
     Route: 047
     Dates: end: 20161220
  5. CALCIUM [Concomitant]
     Active Substance: CALCIUM
     Indication: PRODUCT USED FOR UNKNOWN INDICATION
     Dosage: UNK
     Route: 065

REACTIONS (24)
  - Platelet count decreased [Unknown]
  - Migraine [Unknown]
  - Headache [Unknown]
  - Inflammation [Unknown]
  - Bone pain [Unknown]
  - Arthralgia [Unknown]
  - Swelling face [Unknown]
  - Breast pain [Unknown]
  - Haematoma [Unknown]
  - Pruritus [Unknown]
  - Somnolence [Unknown]
  - Gait disturbance [Unknown]
  - Pain in extremity [Unknown]
  - Malaise [Unknown]
  - Gingival pain [Unknown]
  - Vaginal haemorrhage [Unknown]
  - Feeling of despair [Unknown]
  - Pain [Unknown]
  - Syncope [Unknown]
  - Incorrect route of drug administration [Unknown]
  - Breast disorder female [Unknown]
  - Post procedural haemorrhage [Unknown]
  - Balance disorder [Unknown]
  - Fatigue [Unknown]
